FAERS Safety Report 13690961 (Version 1)
Quarter: 2017Q2

REPORT INFORMATION
  Report Type: Not Available
  Country: US (occurrence: US)
  Receive Date: 20170626
  Receipt Date: 20170626
  Transmission Date: 20170830
  Serious: No
  Sender: FDA-Public Use
  Company Number: US-ANIPHARMA-2016-US-010162

PATIENT
  Age: 15 Year
  Sex: Female
  Weight: 67.13 kg

DRUGS (1)
  1. ERYTHROMYCIN ETHYLSUCCINATE FOR ORAL SUSPENSION USP [Suspect]
     Active Substance: ERYTHROMYCIN ETHYLSUCCINATE
     Dosage: 3 DOSES PER DAY
     Route: 048
     Dates: start: 201609

REACTIONS (1)
  - Abdominal pain [Not Recovered/Not Resolved]

NARRATIVE: CASE EVENT DATE: 201609
